APPROVED DRUG PRODUCT: CLOBETASOL PROPIONATE
Active Ingredient: CLOBETASOL PROPIONATE
Strength: 0.05%
Dosage Form/Route: LOTION;TOPICAL
Application: A209147 | Product #001 | TE Code: AB
Applicant: LUPIN LTD
Approved: Sep 22, 2017 | RLD: No | RS: No | Type: RX